FAERS Safety Report 5782121-4 (Version None)
Quarter: 2008Q2

REPORT INFORMATION
  Report Type: 
  Country: None (occurrence: None)
  Receive Date: 20080623
  Receipt Date: 20080611
  Transmission Date: 20081010
  Serious: Yes (Other)
  Sender: FDA-Public Use
  Company Number: NL-BRISTOL-MYERS SQUIBB COMPANY-14236178

PATIENT
  Age: 61 Year
  Sex: Male
  Weight: 76 kg

DRUGS (2)
  1. ERBITUX [Suspect]
     Indication: COLON CANCER
     Dosage: STRENGTH 2MG/ML.
     Dates: start: 20080314, end: 20080322
  2. SINTROM MITIS [Concomitant]
     Indication: ATRIAL FIBRILLATION
     Dosage: TABLET 1 MG.

REACTIONS (1)
  - ISCHAEMIC STROKE [None]
